FAERS Safety Report 8821189 (Version 1)
Quarter: 2012Q4

REPORT INFORMATION
  Report Type: 
  Country: US (occurrence: US)
  Receive Date: 20121002
  Receipt Date: 20121002
  Transmission Date: 20130627
  Serious: Yes (Death)
  Sender: FDA-Public Use
  Company Number: US-ROCHE-1129880

PATIENT
  Sex: Male

DRUGS (10)
  1. RITUXAN [Suspect]
     Indication: DIFFUSE LARGE B-CELL LYMPHOMA
     Route: 065
     Dates: start: 19990226
  2. RITUXAN [Suspect]
     Route: 065
     Dates: start: 19990801
  3. RITUXAN [Suspect]
     Route: 065
     Dates: start: 20000424
  4. RITUXAN [Suspect]
     Route: 065
     Dates: start: 20000522
  5. RITUXAN [Suspect]
     Route: 065
     Dates: start: 20000619
  6. RITUXAN [Suspect]
     Route: 065
     Dates: start: 20000717
  7. CYCLOPHOSPHAMIDE [Concomitant]
  8. HYDROXYDAUNORUBICIN [Concomitant]
  9. ONCOVIN [Concomitant]
  10. PREDNISONE [Concomitant]

REACTIONS (2)
  - Death [Fatal]
  - Disease progression [Unknown]
